FAERS Safety Report 10657462 (Version 1)
Quarter: 2014Q4

REPORT INFORMATION
  Report Type: Spontaneous
  Country: US (occurrence: US)
  Receive Date: 20141217
  Receipt Date: 20141217
  Transmission Date: 20150529
  Serious: Yes (Hospitalization, Other)
  Sender: FDA-Public Use
  Company Number: CHPA2014US016463

PATIENT
  Sex: Male

DRUGS (3)
  1. SUBOXONE [Suspect]
     Active Substance: BUPRENORPHINE HYDROCHLORIDE\NALOXONE HYDROCHLORIDE
     Route: 064
  2. SUBUTEX [Suspect]
     Active Substance: BUPRENORPHINE HYDROCHLORIDE
     Route: 064
  3. CONTROL STEP 1 21MG [Suspect]
     Active Substance: NICOTINE
     Dosage: MATERNAL DOSE: 1 PATCH (21 MG) A DAY
     Route: 064

REACTIONS (3)
  - Malaise [Recovered/Resolved]
  - Drug dependence [Recovered/Resolved]
  - Foetal exposure during pregnancy [Unknown]
